FAERS Safety Report 13365690 (Version 5)
Quarter: 2017Q4

REPORT INFORMATION
  Report Type: Report from Study
  Country: CA (occurrence: CA)
  Receive Date: 20170323
  Receipt Date: 20171110
  Transmission Date: 20180320
  Serious: Yes (Hospitalization, Other)
  Sender: FDA-Public Use
  Company Number: CA-BAYER-2017-051401

PATIENT
  Age: 71 Year
  Sex: Female

DRUGS (4)
  1. ADEMPAS [Suspect]
     Active Substance: RIOCIGUAT
     Indication: PULMONARY HYPERTENSION
     Dosage: UNK
     Route: 048
     Dates: start: 20160128
  2. ADEMPAS [Suspect]
     Active Substance: RIOCIGUAT
     Indication: PULMONARY HYPERTENSION
     Dosage: 2.5 MG, TID
     Route: 048
  3. CARBIDOPA. [Concomitant]
     Active Substance: CARBIDOPA
     Indication: PARKINSONISM
     Dosage: UNK
  4. WARFARIN [Concomitant]
     Active Substance: WARFARIN
     Dosage: 2 1/2 TABLET OD

REACTIONS (13)
  - Parkinson^s disease [Not Recovered/Not Resolved]
  - Nasopharyngitis [Not Recovered/Not Resolved]
  - Drug hypersensitivity [Unknown]
  - Fall [Unknown]
  - Dyspnoea [Not Recovered/Not Resolved]
  - Hospitalisation [Not Recovered/Not Resolved]
  - Nausea [Not Recovered/Not Resolved]
  - Gait disturbance [Not Recovered/Not Resolved]
  - Hypotension [Unknown]
  - Coccydynia [Unknown]
  - Asthenia [Not Recovered/Not Resolved]
  - Pneumonia [Unknown]
  - Blood sodium decreased [Not Recovered/Not Resolved]

NARRATIVE: CASE EVENT DATE: 20170313
